FAERS Safety Report 7501113-8 (Version None)
Quarter: 2011Q2

REPORT INFORMATION
  Report Type: 
  Country: None (occurrence: None)
  Receive Date: 20110524
  Receipt Date: 20110517
  Transmission Date: 20111010
  Serious: Yes (Life-Threatening, Other)
  Sender: FDA-Public Use
  Company Number: CH-GENZYME-CERZ-1002004

PATIENT

DRUGS (1)
  1. CEREZYME [Suspect]
     Indication: GAUCHER'S DISEASE
     Dosage: 100 U/KG, Q4W
     Route: 042
     Dates: start: 20090101, end: 20110407

REACTIONS (3)
  - CARDIOPULMONARY FAILURE [None]
  - VENTRICULAR EXTRASYSTOLES [None]
  - HYPOKALAEMIA [None]
